FAERS Safety Report 9458106 (Version 1)
Quarter: 2013Q3

REPORT INFORMATION
  Report Type: Spontaneous
  Country: US (occurrence: US)
  Receive Date: 20130814
  Receipt Date: 20130814
  Transmission Date: 20140515
  Serious: Yes (Other)
  Sender: FDA-Public Use
  Company Number: US-BAYER-2013-095940

PATIENT
  Age: 42 Year
  Sex: Female

DRUGS (5)
  1. YASMIN [Suspect]
  2. ALBUTEROL [Concomitant]
     Dosage: AS NEEDED
  3. IBUPROFEN [Concomitant]
     Dosage: UNK
  4. SEREVENT [Concomitant]
     Dosage: 2 PUFFS AS NEEDED
  5. FLOVENT [Concomitant]
     Dosage: 2 PUFFS AS NEEDED

REACTIONS (1)
  - Deep vein thrombosis [None]
